FAERS Safety Report 7369363-1 (Version None)
Quarter: 2011Q1

REPORT INFORMATION
  Report Type: 
  Country: None (occurrence: None)
  Receive Date: 20110323
  Receipt Date: 20110224
  Transmission Date: 20110831
  Serious: No
  Sender: FDA-Public Use
  Company Number: US-B.I. PHARMACEUTICALS,INC./RIDGEFIELD-2011-BP-06666BP

PATIENT
  Sex: Female

DRUGS (9)
  1. PRADAXA [Suspect]
     Indication: ATRIAL FIBRILLATION
     Dosage: 300 MG
     Route: 048
     Dates: start: 20110101, end: 20110201
  2. LASIX [Concomitant]
     Indication: FLUID RETENTION
  3. PRADAXA [Suspect]
     Dosage: 300 MG
     Route: 048
     Dates: start: 20110201
  4. MULTIVITAMIN [Concomitant]
     Indication: PROPHYLAXIS
  5. LOVAZA [Concomitant]
     Indication: PROPHYLAXIS
  6. TOPRAL [Concomitant]
     Indication: ATRIAL FIBRILLATION
  7. AMBIEN [Concomitant]
     Indication: SLEEP DISORDER
  8. FLECAINIDE ACETATE [Concomitant]
     Indication: ATRIAL FIBRILLATION
  9. SULFA [Concomitant]
     Indication: SINUSITIS

REACTIONS (9)
  - ABDOMINAL PAIN UPPER [None]
  - FLATULENCE [None]
  - DYSPEPSIA [None]
  - NAUSEA [None]
  - ERUCTATION [None]
  - VOMITING [None]
  - ABDOMINAL PAIN [None]
  - RECTAL HAEMORRHAGE [None]
  - CONTUSION [None]
